FAERS Safety Report 19173201 (Version 1)
Quarter: 2021Q2

REPORT INFORMATION
  Report Type: Spontaneous
  Country: US (occurrence: US)
  Receive Date: 20210422
  Receipt Date: 20210422
  Transmission Date: 20210717
  Serious: No
  Sender: FDA-Public Use
  Company Number: None

PATIENT
  Age: 60 Year
  Sex: Female
  Weight: 54 kg

DRUGS (12)
  1. SPRYCEL [Suspect]
     Active Substance: DASATINIB
     Indication: CHRONIC MYELOID LEUKAEMIA
     Route: 048
     Dates: start: 20210222
  2. ALLOPURINOL. [Concomitant]
     Active Substance: ALLOPURINOL
  3. TOPIRAMATE. [Concomitant]
     Active Substance: TOPIRAMATE
  4. ARIPIPRAZOLE. [Concomitant]
     Active Substance: ARIPIPRAZOLE
  5. MS CONTIN [Concomitant]
     Active Substance: MORPHINE SULFATE
  6. OXYCODONE AND ACETAMINOPHEN [Concomitant]
     Active Substance: ACETAMINOPHEN\OXYCODONE HYDROCHLORIDE
  7. ASPIRIN?ACETAMINOPHEN?CAFFEINE [Concomitant]
  8. DULOXETINE. [Concomitant]
     Active Substance: DULOXETINE
  9. VANCOMYCIN [Concomitant]
     Active Substance: VANCOMYCIN
  10. BUPROPION. [Concomitant]
     Active Substance: BUPROPION
  11. ONDANSETRON [Concomitant]
     Active Substance: ONDANSETRON
  12. HYDREA [Concomitant]
     Active Substance: HYDROXYUREA

REACTIONS (1)
  - COVID-19 [None]

NARRATIVE: CASE EVENT DATE: 20210422
